FAERS Safety Report 4984989-8 (Version None)
Quarter: 2006Q2

REPORT INFORMATION
  Report Type: 
  Country: None (occurrence: None)
  Receive Date: 20060426
  Receipt Date: 20060426
  Transmission Date: 20061013
  Serious: Yes (Disabling)
  Sender: FDA-Public Use
  Company Number: None

PATIENT
  Age: 22 Year
  Sex: Male

DRUGS (1)
  1. OMNIPAQUE 350 [Suspect]
     Indication: ABDOMINAL PAIN
     Dosage: 350 ONE TIME IV BOLUS
     Route: 040
     Dates: start: 20060417, end: 20060417

REACTIONS (1)
  - NASAL CONGESTION [None]
